FAERS Safety Report 13074961 (Version 6)
Quarter: 2017Q1

REPORT INFORMATION
  Report Type: Spontaneous
  Country: US (occurrence: US)
  Receive Date: 20161230
  Receipt Date: 20170327
  Transmission Date: 20170428
  Serious: No
  Sender: FDA-Public Use
  Company Number: US-PFIZER INC-2016600674

PATIENT
  Age: 79 Year
  Sex: Female
  Weight: 64 kg

DRUGS (1)
  1. XELJANZ [Suspect]
     Active Substance: TOFACITINIB CITRATE
     Indication: RHEUMATOID ARTHRITIS
     Dosage: 5 MG, AS DIRECTED BY PHYSICIAN
     Route: 048
     Dates: start: 201603, end: 201611

REACTIONS (5)
  - Drug ineffective [Unknown]
  - Arthralgia [Unknown]
  - Pain in extremity [Recovering/Resolving]
  - Drug effect incomplete [Unknown]
  - Condition aggravated [Unknown]
